FAERS Safety Report 17247166 (Version 1)
Quarter: 2020Q1

REPORT INFORMATION
  Report Type: Spontaneous
  Country: US (occurrence: US)
  Receive Date: 20200108
  Receipt Date: 20200108
  Transmission Date: 20200409
  Serious: No
  Sender: FDA-Public Use
  Company Number: US-PFIZER INC-2020006661

PATIENT
  Age: 85 Year
  Sex: Male

DRUGS (1)
  1. TAFAMIDIS [Suspect]
     Active Substance: TAFAMIDIS MEGLUMINE
     Indication: FAMILIAL AMYLOIDOSIS
     Dosage: 80 MG, UNK

REACTIONS (4)
  - Dyspnoea exertional [Unknown]
  - Sinusitis [Unknown]
  - Ear disorder [Unknown]
  - Viral infection [Unknown]
